FAERS Safety Report 11705036 (Version 1)
Quarter: 2015Q4

REPORT INFORMATION
  Report Type: Spontaneous
  Country: CN (occurrence: CN)
  Receive Date: 20151106
  Receipt Date: 20151106
  Transmission Date: 20160304
  Serious: Yes (Death, Hospitalization)
  Sender: FDA-Public Use
  Company Number: CN-SA-2015SA176950

PATIENT
  Age: 34 Year
  Sex: Female

DRUGS (2)
  1. DOCETAXEL. [Suspect]
     Active Substance: DOCETAXEL
     Indication: LUNG ADENOCARCINOMA METASTATIC
     Dosage: ON DAY 1, ONE ROUTINE DOSE OF DOCETAXEL
     Route: 041
     Dates: start: 20140424, end: 20140424
  2. DEXAMETHASONE. [Concomitant]
     Active Substance: DEXAMETHASONE
     Route: 048

REACTIONS (13)
  - Nausea [Unknown]
  - Sinus tachycardia [Fatal]
  - Vomiting [Unknown]
  - Electrocardiogram low voltage [Fatal]
  - Gastrointestinal disorder [Unknown]
  - Chest discomfort [Fatal]
  - Alanine aminotransferase increased [Unknown]
  - Asthenia [Unknown]
  - Liver disorder [Unknown]
  - Pericardial effusion [Fatal]
  - Heart sounds abnormal [Fatal]
  - Oedema peripheral [Unknown]
  - Blood bilirubin increased [Unknown]

NARRATIVE: CASE EVENT DATE: 20140425
